FAERS Safety Report 8912727 (Version 3)
Quarter: 2013Q3

REPORT INFORMATION
  Report Type: Report from Study
  Country: JP (occurrence: JP)
  Receive Date: 20121116
  Receipt Date: 20130911
  Transmission Date: 20140515
  Serious: Yes (Other)
  Sender: FDA-Public Use
  Company Number: JP-VERTEX PHARMACEUTICAL INC.-AE-2012-003433

PATIENT
  Age: 65 Year
  Sex: Female

DRUGS (14)
  1. VX-950 (TELAPREVIR) [Suspect]
     Indication: CHRONIC HEPATITIS C
     Dosage: 2250 MG, QD
     Route: 048
     Dates: start: 20120117, end: 20120213
  2. VX-950 (TELAPREVIR) [Suspect]
     Dosage: 1500 MG, QD
     Route: 048
     Dates: start: 20120214, end: 20120410
  3. PEGINTERFERON ALFA-2B [Suspect]
     Indication: CHRONIC HEPATITIS C
     Dosage: 1.67 ?G/KG, QW
     Route: 058
     Dates: start: 20120117, end: 20120403
  4. PEGINTERFERON ALFA-2B [Suspect]
     Dosage: 1.04 ?G/KG, QW
     Route: 058
     Dates: start: 20120411, end: 20120626
  5. RIBAVIRIN [Suspect]
     Indication: CHRONIC HEPATITIS C
     Dosage: 400 MG, QD
     Route: 048
     Dates: start: 20120117, end: 20120206
  6. RIBAVIRIN [Suspect]
     Dosage: 200 MG, QD
     Route: 048
     Dates: start: 20120207, end: 20120410
  7. RIBAVIRIN [Suspect]
     Dosage: 200 MG, QD
     Route: 048
     Dates: start: 20120424, end: 20120430
  8. RIBAVIRIN [Suspect]
     Dosage: 200 MG, QD
     Route: 048
     Dates: start: 20120508, end: 20120514
  9. RIBAVIRIN [Suspect]
     Dosage: 200 MG, QD
     Route: 048
     Dates: start: 20120522, end: 20120625
  10. DOMPERIDONE [Concomitant]
     Dosage: 30 MG, QD
     Route: 048
     Dates: start: 20120117
  11. LOXOPROFEN [Concomitant]
     Dosage: 60 MG/DAY, PRN
     Route: 048
     Dates: start: 20120117
  12. THYRADIN S [Concomitant]
     Dosage: 50 ?G, QD
     Route: 048
  13. ZYLORIC [Concomitant]
     Dosage: 100 MG, QD
     Route: 048
     Dates: end: 20120123
  14. BLOPRESS [Concomitant]
     Dosage: 4 MG, QD
     Route: 048
     Dates: end: 20120213

REACTIONS (2)
  - Blood creatinine increased [Recovered/Resolved]
  - Haemoglobin decreased [Recovered/Resolved]
